FAERS Safety Report 13139459 (Version 3)
Quarter: 2017Q1

REPORT INFORMATION
  Report Type: Spontaneous
  Country: TR (occurrence: TR)
  Receive Date: 20170123
  Receipt Date: 20170302
  Transmission Date: 20170428
  Serious: Yes (Hospitalization)
  Sender: FDA-Public Use
  Company Number: TR-ELI_LILLY_AND_COMPANY-TR201701002616

PATIENT
  Age: 18 Month
  Sex: Female

DRUGS (1)
  1. ZYPREXA [Suspect]
     Active Substance: OLANZAPINE
     Indication: PRODUCT USED FOR UNKNOWN INDICATION
     Dosage: UNK, UNKNOWN
     Route: 048
     Dates: start: 20170106

REACTIONS (24)
  - Agitation [Recovered/Resolved]
  - Hallucination [Recovered/Resolved]
  - Stress [Recovered/Resolved]
  - Slow response to stimuli [Recovered/Resolved]
  - Muscle spasms [Recovered/Resolved]
  - Anxiety [Recovered/Resolved]
  - Fatigue [Recovered/Resolved]
  - Sleep disorder [Recovered/Resolved]
  - Tremor [Recovered/Resolved]
  - Pyrexia [Recovered/Resolved]
  - Fall [Recovered/Resolved]
  - Daydreaming [Recovered/Resolved]
  - Tachycardia [Recovered/Resolved]
  - Accidental overdose [Not Recovered/Not Resolved]
  - Eye movement disorder [Recovered/Resolved]
  - Altered state of consciousness [Recovered/Resolved]
  - Seizure [Recovered/Resolved]
  - Hypertension [Recovered/Resolved]
  - Personality change [Recovered/Resolved]
  - Wrong patient received medication [Unknown]
  - Psychotic disorder [Recovered/Resolved]
  - Balance disorder [Recovered/Resolved]
  - Dystonia [Recovered/Resolved]
  - Accidental exposure to product by child [Recovered/Resolved]

NARRATIVE: CASE EVENT DATE: 20170106
